FAERS Safety Report 13494485 (Version 1)
Quarter: 2017Q2

REPORT INFORMATION
  Report Type: Spontaneous
  Country: US (occurrence: US)
  Receive Date: 20170428
  Receipt Date: 20170428
  Transmission Date: 20170830
  Serious: Yes (Other)
  Sender: FDA-Public Use
  Company Number: US-BEH-2017079806

PATIENT
  Age: 58 Year
  Sex: Female

DRUGS (1)
  1. PRIVIGEN [Suspect]
     Active Substance: HUMAN IMMUNOGLOBULIN G
     Indication: ANTISYNTHETASE SYNDROME
     Dosage: 400 MG/KG, 5 DAYS PER MONTH
     Route: 042
     Dates: start: 201512

REACTIONS (4)
  - Suspected transmission of an infectious agent via product [Unknown]
  - Hepatitis B [Unknown]
  - Hepatitis B surface antibody positive [Unknown]
  - Hepatitis B core antibody positive [Unknown]

NARRATIVE: CASE EVENT DATE: 201704
